FAERS Safety Report 9868658 (Version 2)
Quarter: 2014Q1

REPORT INFORMATION
  Report Type: Spontaneous
  Country: US (occurrence: US)
  Receive Date: 20140204
  Receipt Date: 20140204
  Transmission Date: 20141002
  Serious: Yes (Hospitalization)
  Sender: FDA-Public Use
  Company Number: US-B.I. PHARMACEUTICALS,INC./RIDGEFIELD-2013-BI-42641BP

PATIENT
  Sex: Female
  Weight: 77.11 kg

DRUGS (4)
  1. PRADAXA [Suspect]
     Indication: ATRIAL FIBRILLATION
     Dosage: 300 MG
     Dates: start: 201203, end: 20120531
  2. CHEMOTHERAPY [Concomitant]
     Indication: UTERINE CANCER
     Dates: start: 201107
  3. ATENOLOL [Concomitant]
     Dosage: 50 MG
  4. MAXZIDE [Concomitant]

REACTIONS (3)
  - Lower gastrointestinal haemorrhage [Recovered/Resolved]
  - Haemorrhagic anaemia [Unknown]
  - Coagulopathy [Unknown]
